FAERS Safety Report 6823048-6 (Version None)
Quarter: 2010Q3

REPORT INFORMATION
  Report Type: 
  Country: None (occurrence: None)
  Receive Date: 20100708
  Receipt Date: 20100629
  Transmission Date: 20110219
  Serious: Yes (Other)
  Sender: FDA-Public Use
  Company Number: B0663129A

PATIENT
  Sex: Male

DRUGS (7)
  1. SERETIDE [Suspect]
     Indication: CHRONIC OBSTRUCTIVE PULMONARY DISEASE
     Dosage: 500MCG TWICE PER DAY
     Route: 055
     Dates: start: 20070101
  2. SIMVASTATIN [Concomitant]
  3. OMEPRAZOLE [Concomitant]
  4. ASPIRIN [Concomitant]
  5. ACETAMINOPHEN AND CODEINE PHOSPHATE [Concomitant]
  6. SALBUTAMOL INHALER [Concomitant]
  7. TIOTROPIUM [Concomitant]

REACTIONS (3)
  - ARTHRALGIA [None]
  - BACK PAIN [None]
  - OSTEONECROSIS [None]
